FAERS Safety Report 7373587-7 (Version None)
Quarter: 2011Q1

REPORT INFORMATION
  Report Type: 
  Country: None (occurrence: None)
  Receive Date: 20110314
  Receipt Date: 20110303
  Transmission Date: 20110831
  Serious: Yes (Hospitalization)
  Sender: FDA-Public Use
  Company Number: TAJPN-11-0006

PATIENT
  Age: 71 Year
  Sex: Female
  Weight: 67 kg

DRUGS (13)
  1. KYTRIL [Concomitant]
  2. EMEND [Concomitant]
  3. ACTOS [Concomitant]
  4. CELECOXIB [Concomitant]
  5. FAMOTIDINE [Concomitant]
  6. RABEPRAZOLE SODIUM [Concomitant]
  7. GASMOTIN (MOSAPRIDE CITRATE) [Concomitant]
  8. ABRAXANE [Suspect]
     Indication: BREAST CANCER METASTATIC
     Dosage: (444 MG)
     Dates: start: 20101130, end: 20101221
  9. DECADRON [Concomitant]
  10. ZOMETA [Concomitant]
  11. EPALRESTAT (EPALRESTAT) [Concomitant]
  12. ALOXI [Concomitant]
  13. METFORMIN HYDROCHLORIDE [Concomitant]

REACTIONS (10)
  - FAECAL INCONTINENCE [None]
  - PARAPLEGIA [None]
  - DYSCHEZIA [None]
  - URINARY RETENTION [None]
  - BLADDER DYSFUNCTION [None]
  - INTESTINAL FUNCTIONAL DISORDER [None]
  - MOVEMENT DISORDER [None]
  - SPINAL CORD INFARCTION [None]
  - NEUTROPHIL PERCENTAGE DECREASED [None]
  - GAIT DISTURBANCE [None]
